FAERS Safety Report 7283463-6 (Version None)
Quarter: 2011Q1

REPORT INFORMATION
  Report Type: 
  Country: None (occurrence: None)
  Receive Date: 20110204
  Receipt Date: 20110204
  Transmission Date: 20110831
  Serious: Yes (Other)
  Sender: FDA-Public Use
  Company Number: None

PATIENT
  Sex: Female
  Weight: 54.4316 kg

DRUGS (1)
  1. VAGIFEM [Suspect]
     Indication: BLOOD OESTROGEN DECREASED
     Dosage: ONE PER 2 X PER WEEK
     Dates: start: 20090710

REACTIONS (1)
  - METRORRHAGIA [None]
